FAERS Safety Report 10055209 (Version 1)
Quarter: 2014Q2

REPORT INFORMATION
  Report Type: Spontaneous
  Country: DE (occurrence: DE)
  Receive Date: 20140403
  Receipt Date: 20140403
  Transmission Date: 20141212
  Serious: Yes (Life-Threatening)
  Sender: FDA-Public Use
  Company Number: DE-ROCHE-1375688

PATIENT
  Age: 72 Year
  Sex: Female

DRUGS (2)
  1. AVASTIN [Suspect]
     Indication: BRONCHIAL CARCINOMA
     Route: 042
     Dates: start: 201307, end: 201402
  2. PEMETREXED [Concomitant]
     Indication: BRONCHIAL CARCINOMA
     Route: 042

REACTIONS (2)
  - Jejunal perforation [Unknown]
  - Metastases to abdominal cavity [Recovered/Resolved]
